FAERS Safety Report 5308438-5 (Version None)
Quarter: 2007Q2

REPORT INFORMATION
  Report Type: 
  Country: None (occurrence: None)
  Receive Date: 20070426
  Receipt Date: 20070417
  Transmission Date: 20071010
  Serious: Yes (Hospitalization)
  Sender: FDA-Public Use
  Company Number: CA-JNJFOC-20070200563

PATIENT
  Sex: Male

DRUGS (5)
  1. REMICADE [Suspect]
     Route: 042
  2. REMICADE [Suspect]
     Route: 042
  3. REMICADE [Suspect]
     Indication: COLITIS ULCERATIVE
     Route: 042
  4. SOLU-CORTEF [Concomitant]
  5. SOLU-CORTEF [Concomitant]
     Indication: PROPHYLAXIS

REACTIONS (3)
  - COLITIS ULCERATIVE [None]
  - ELECTROLYTE IMBALANCE [None]
  - WHITE BLOOD CELL COUNT INCREASED [None]
